FAERS Safety Report 6439685-7 (Version None)
Quarter: 2009Q4

REPORT INFORMATION
  Report Type: 
  Country: None (occurrence: None)
  Receive Date: 20091113
  Receipt Date: 20091105
  Transmission Date: 20100525
  Serious: Yes (Other)
  Sender: FDA-Public Use
  Company Number: US-PFIZER INC-2009285005

PATIENT
  Sex: Female

DRUGS (2)
  1. LIPITOR [Suspect]
     Indication: ARTERIAL OCCLUSIVE DISEASE
     Dosage: 150 MG, UNK
     Dates: start: 20050101, end: 20050101
  2. LIPITOR [Suspect]
     Indication: OBSTRUCTION

REACTIONS (5)
  - AMNESIA [None]
  - BACK PAIN [None]
  - CONFUSIONAL STATE [None]
  - MOTOR DYSFUNCTION [None]
  - MYALGIA [None]
